FAERS Safety Report 9776011 (Version 1)
Quarter: 2013Q4

REPORT INFORMATION
  Report Type: Spontaneous
  Country: US (occurrence: US)
  Receive Date: 20131220
  Receipt Date: 20131220
  Transmission Date: 20140711
  Serious: No
  Sender: FDA-Public Use
  Company Number: -SAAVPROD-THYR-1000971

PATIENT
  Age: 59 Year
  Sex: Male

DRUGS (2)
  1. THYROTROPIN ALFA [Suspect]
     Indication: DIAGNOSTIC PROCEDURE
     Dosage: UNK
     Route: 065
     Dates: start: 1999
  2. LEVOTHYROXINE SODIUM [Concomitant]
     Indication: PRODUCT USED FOR UNKNOWN INDICATION
     Dosage: UNK
     Route: 065

REACTIONS (2)
  - Lymphoma [Unknown]
  - Feeling abnormal [Unknown]
